FAERS Safety Report 5027283-1 (Version None)
Quarter: 2006Q2

REPORT INFORMATION
  Report Type: 
  Country: None (occurrence: None)
  Receive Date: 20060608
  Receipt Date: 20060529
  Transmission Date: 20061013
  Serious: Yes (Other)
  Sender: FDA-Public Use
  Company Number: 2006070603

PATIENT
  Age: 58 Year
  Sex: Female

DRUGS (2)
  1. AROMASIN [Suspect]
     Indication: BREAST CANCER
     Dosage: 25 MG (25 MG), ORAL
     Route: 048
  2. LAMICTAL [Concomitant]

REACTIONS (2)
  - CONDITION AGGRAVATED [None]
  - GRAND MAL CONVULSION [None]
